FAERS Safety Report 10797681 (Version 3)
Quarter: 2015Q2

REPORT INFORMATION
  Report Type: Spontaneous
  Country: US (occurrence: US)
  Receive Date: 20150216
  Receipt Date: 20150602
  Transmission Date: 20150821
  Serious: Yes (Hospitalization)
  Sender: FDA-Public Use
  Company Number: US-PFIZER INC-2015051928

PATIENT
  Age: 62 Year
  Sex: Female
  Weight: 64 kg

DRUGS (10)
  1. ZYVOX [Suspect]
     Active Substance: LINEZOLID
     Indication: MYCOBACTERIUM CHELONAE INFECTION
  2. TEMAZEPAM. [Concomitant]
     Active Substance: TEMAZEPAM
     Dosage: 15 MG, UNK
  3. ZYVOX [Suspect]
     Active Substance: LINEZOLID
     Indication: LUNG DISORDER
     Dosage: 600 MG, 2X/DAY
     Route: 048
     Dates: start: 20150301
  4. PREDNISONE. [Concomitant]
     Active Substance: PREDNISONE
     Dosage: 10 MG, UNK
  5. DULOXETINE [Concomitant]
     Active Substance: DULOXETINE
     Dosage: 20 MG, UNK
  6. CLARITHROMYCIN. [Suspect]
     Active Substance: CLARITHROMYCIN
     Dosage: 500 MG, UNK
  7. BIAXIN [Concomitant]
     Active Substance: CLARITHROMYCIN
     Indication: MYCOBACTERIUM CHELONAE INFECTION
     Dosage: 500 MG, 2X/DAY
     Dates: start: 20141124, end: 20150202
  8. PANTOPRAZOLE [Concomitant]
     Active Substance: PANTOPRAZOLE SODIUM
     Dosage: 40 MG, UNK
  9. ARAVA [Concomitant]
     Active Substance: LEFLUNOMIDE
     Dosage: 20 MG, UNK
  10. FERROUS SULFATE [Concomitant]
     Active Substance: FERROUS SULFATE\FERROUS SULFATE, DRIED
     Dosage: 325 MG, 2X/DAY

REACTIONS (11)
  - Diarrhoea [Recovered/Resolved]
  - Drug dose omission [Unknown]
  - Constipation [Recovered/Resolved]
  - Fungal infection [Recovered/Resolved]
  - Vision blurred [Recovered/Resolved]
  - Oral fungal infection [Recovered/Resolved]
  - Eructation [Recovered/Resolved]
  - Nausea [Recovered/Resolved]
  - Dizziness [Recovered/Resolved]
  - Malaise [Recovered/Resolved]
  - Asthenia [Recovered/Resolved]

NARRATIVE: CASE EVENT DATE: 20150202
